FAERS Safety Report 19172938 (Version 1)
Quarter: 2021Q2

REPORT INFORMATION
  Report Type: Spontaneous
  Country: US (occurrence: US)
  Receive Date: 20210422
  Receipt Date: 20210422
  Transmission Date: 20210717
  Serious: Yes (Other)
  Sender: FDA-Public Use
  Company Number: None

PATIENT
  Age: 55 Year
  Sex: Male
  Weight: 54.9 kg

DRUGS (2)
  1. AMBRISENTAN TABLET [Suspect]
     Active Substance: AMBRISENTAN
     Indication: PULMONARY ARTERIAL HYPERTENSION
     Route: 048
     Dates: start: 20210415
  2. SILDENAFIL. [Concomitant]
     Active Substance: SILDENAFIL

REACTIONS (8)
  - Platelet count decreased [None]
  - Blood alkaline phosphatase decreased [None]
  - Lymphocyte count decreased [None]
  - Diarrhoea [None]
  - International normalised ratio decreased [None]
  - Blood magnesium decreased [None]
  - Alanine aminotransferase increased [None]
  - Red cell distribution width increased [None]

NARRATIVE: CASE EVENT DATE: 20210422
